FAERS Safety Report 17784810 (Version 2)
Quarter: 2020Q2

REPORT INFORMATION
  Report Type: Spontaneous
  Country: ES (occurrence: ES)
  Receive Date: 20200514
  Receipt Date: 20200622
  Transmission Date: 20200714
  Serious: No
  Sender: FDA-Public Use
  Company Number: ES-JNJFOC-20200511952

PATIENT
  Sex: Male

DRUGS (1)
  1. DUROGESIC MATRIX [Suspect]
     Active Substance: FENTANYL
     Indication: PRODUCT USED FOR UNKNOWN INDICATION
     Dosage: STRENGTH- 50.00 MCG/HR
     Route: 062

REACTIONS (1)
  - Product adhesion issue [Unknown]
